FAERS Safety Report 26009601 (Version 1)
Quarter: 2025Q4

REPORT INFORMATION
  Report Type: Spontaneous
  Country: US (occurrence: US)
  Receive Date: 20251107
  Receipt Date: 20251107
  Transmission Date: 20260118
  Serious: No
  Sender: ABBVIE
  Company Number: US-ABBVIE-6534008

PATIENT

DRUGS (1)
  1. RINVOQ [Suspect]
     Active Substance: UPADACITINIB
     Indication: Crohn^s disease
     Route: 048
     Dates: start: 20251020

REACTIONS (5)
  - Abdominal distension [Recovering/Resolving]
  - Inflammation [Unknown]
  - Stress [Unknown]
  - Mucous stools [Recovering/Resolving]
  - Haematochezia [Recovering/Resolving]

NARRATIVE: CASE EVENT DATE: 20250101
